FAERS Safety Report 6243179-1 (Version None)
Quarter: 2009Q2

REPORT INFORMATION
  Report Type: 
  Country: None (occurrence: None)
  Receive Date: 20090624
  Receipt Date: 20090323
  Transmission Date: 20091009
  Serious: Yes (Life-Threatening, Hospitalization)
  Sender: FDA-Public Use
  Company Number: TR-ELI_LILLY_AND_COMPANY-TR200906002257

PATIENT
  Age: 73 Year
  Sex: Male

DRUGS (2)
  1. HUMALOG MIX 75/25 [Suspect]
     Indication: DIABETES MELLITUS
     Dosage: 26 U, EACH MORNING
     Route: 058
     Dates: start: 20070920
  2. HUMALOG MIX 75/25 [Suspect]
     Dosage: 14 U, EACH EVENING
     Route: 058

REACTIONS (3)
  - BLOOD GLUCOSE DECREASED [None]
  - DIABETIC COMA [None]
  - HYPERTENSION [None]
